FAERS Safety Report 22112089 (Version 1)
Quarter: 2023Q1

REPORT INFORMATION
  Report Type: Spontaneous
  Country: HN (occurrence: HN)
  Receive Date: 20230318
  Receipt Date: 20230318
  Transmission Date: 20230418
  Serious: Yes (Death)
  Sender: FDA-Public Use
  Company Number: HN-002147023-NVSC2022HN245115

PATIENT
  Sex: Male

DRUGS (1)
  1. GLIVEC [Suspect]
     Active Substance: IMATINIB MESYLATE
     Indication: Gastrointestinal stromal tumour
     Dosage: 400 MG (1 X 400MG)
     Route: 065

REACTIONS (7)
  - Neoplasm [Fatal]
  - Abdominal pain upper [Fatal]
  - Gait inability [Unknown]
  - Feeling abnormal [Unknown]
  - Swelling [Unknown]
  - Disease recurrence [Unknown]
  - Product dose omission issue [Unknown]
